FAERS Safety Report 10043544 (Version 1)
Quarter: 2014Q1

REPORT INFORMATION
  Report Type: Spontaneous
  Country: GB (occurrence: None)
  Receive Date: 20140326
  Receipt Date: 20140326
  Transmission Date: 20141002
  Serious: Yes (Life-Threatening)
  Sender: FDA-Public Use
  Company Number: PI-10213

PATIENT
  Age: 72 Year
  Sex: Male

DRUGS (9)
  1. CHLORAPREP [Suspect]
     Indication: PREOPERATIVE CARE
     Route: 061
     Dates: start: 20000101, end: 20140301
  2. AMITRIPTYLINE [Concomitant]
  3. AMLODIPINE [Concomitant]
  4. CALCIUM CARBONATE [Concomitant]
  5. CYCLIZINE [Concomitant]
  6. EPREX [Concomitant]
  7. NOVORAPID [Concomitant]
  8. PARACETAMOL [Concomitant]
  9. SIMVASTATIN [Concomitant]

REACTIONS (2)
  - Scab [None]
  - Haemorrhage [None]
